FAERS Safety Report 16475068 (Version 4)
Quarter: 2019Q3

REPORT INFORMATION
  Report Type: Spontaneous
  Country: JP (occurrence: JP)
  Receive Date: 20190625
  Receipt Date: 20190927
  Transmission Date: 20191004
  Serious: Yes (Death, Hospitalization, Other)
  Sender: FDA-Public Use
  Company Number: JP-BRISTOL-MYERS SQUIBB COMPANY-BMS-2019-061426

PATIENT
  Age: 78 Year
  Sex: Male

DRUGS (1)
  1. OPDIVO [Suspect]
     Active Substance: NIVOLUMAB
     Indication: GASTRIC CANCER
     Dosage: UNK
     Route: 041

REACTIONS (7)
  - Haematuria [Unknown]
  - Interstitial lung disease [Fatal]
  - Acute respiratory failure [Fatal]
  - Antiphospholipid syndrome [Fatal]
  - Deep vein thrombosis [Unknown]
  - Pulmonary alveolar haemorrhage [Fatal]
  - Diffuse alveolar damage [Fatal]
